FAERS Safety Report 9337457 (Version 6)
Quarter: 2014Q2

REPORT INFORMATION
  Report Type: Spontaneous
  Country: US (occurrence: US)
  Receive Date: 20130607
  Receipt Date: 20140509
  Transmission Date: 20141212
  Serious: Yes (Hospitalization, Other)
  Sender: FDA-Public Use
  Company Number: US-009507513-1305USA017808

PATIENT
  Sex: Female

DRUGS (9)
  1. FOSAMAX [Suspect]
     Indication: OSTEOPOROSIS
     Dosage: 10 MG, QD
     Route: 048
     Dates: start: 200009, end: 200803
  2. FOSAMAX [Suspect]
     Indication: ANKLE FRACTURE
  3. FOSAMAX [Suspect]
     Indication: STRESS FRACTURE
  4. ALENDRONATE SODIUM [Suspect]
     Indication: OSTEOPOROSIS
     Dosage: 10 MG, QD
     Route: 048
     Dates: start: 200803, end: 201010
  5. ALENDRONATE SODIUM [Suspect]
     Indication: ANKLE FRACTURE
  6. ALENDRONATE SODIUM [Suspect]
     Indication: STRESS FRACTURE
  7. VITAMINS (UNSPECIFIED) [Concomitant]
     Dosage: ONE DAILY
     Dates: start: 1970
  8. CALCIUM (UNSPECIFIED) (+) VITAMIN D (UNSPECIFIED) [Concomitant]
     Dosage: 1500 MG CALCIUM, 600 MG VIT D, TID
     Dates: start: 1980
  9. HORMONES (UNSPECIFIED) [Concomitant]
     Dosage: UNK
     Dates: start: 1971

REACTIONS (29)
  - Femur fracture [Unknown]
  - Intramedullary rod insertion [Unknown]
  - Humerus fracture [Unknown]
  - Hip fracture [Unknown]
  - Cholecystectomy [Unknown]
  - Joint effusion [Unknown]
  - Impaired healing [Unknown]
  - Anxiety [Unknown]
  - Hypertension [Unknown]
  - Blood cholesterol increased [Unknown]
  - Normal tension glaucoma [Unknown]
  - Adverse event [Unknown]
  - Ankle fracture [Unknown]
  - Tendon rupture [Unknown]
  - Fall [Unknown]
  - Osteoarthritis [Unknown]
  - Muscle atrophy [Unknown]
  - Vasculitis [Recovered/Resolved]
  - Ankle fracture [Unknown]
  - Osteopenia [Unknown]
  - Spinal fracture [Unknown]
  - Wrist fracture [Unknown]
  - Osteoarthritis [Unknown]
  - Migraine [Unknown]
  - Fear [Unknown]
  - Nervousness [Unknown]
  - Micturition urgency [Unknown]
  - Arthralgia [Not Recovered/Not Resolved]
  - Nausea [Unknown]
